FAERS Safety Report 25443016 (Version 2)
Quarter: 2025Q2

REPORT INFORMATION
  Report Type: Report from Study
  Country: US (occurrence: US)
  Receive Date: 20250617
  Receipt Date: 20250626
  Transmission Date: 20250716
  Serious: Yes (Hospitalization, Other)
  Sender: ABBVIE
  Company Number: US-ABBVIE-6325092

PATIENT
  Age: 73 Year
  Sex: Female
  Weight: 64.41 kg

DRUGS (5)
  1. SYNTHROID [Suspect]
     Active Substance: LEVOTHYROXINE SODIUM
     Indication: Hypothyroidism
     Dosage: FORM STRENGTH: 112 MICROGRAM
     Route: 048
     Dates: start: 2022
  2. SYNTHROID [Suspect]
     Active Substance: LEVOTHYROXINE SODIUM
     Indication: Hypothyroidism
     Route: 048
     Dates: end: 20250611
  3. VITAMINS [Concomitant]
     Active Substance: VITAMINS
     Indication: Product used for unknown indication
  4. CALCIUM [Concomitant]
     Active Substance: CALCIUM
     Indication: Product used for unknown indication
  5. MAGNESIUM [Concomitant]
     Active Substance: MAGNESIUM
     Indication: Product used for unknown indication

REACTIONS (29)
  - Femur fracture [Recovered/Resolved]
  - Weight decreased [Recovered/Resolved]
  - Alopecia [Unknown]
  - Blood thyroid stimulating hormone increased [Not Recovered/Not Resolved]
  - Clostridium difficile infection [Recovered/Resolved]
  - Discomfort [Recovered/Resolved]
  - Fall [Recovered/Resolved]
  - Onychoclasis [Unknown]
  - Urinary retention [Recovered/Resolved]
  - Pancreatitis acute [Recovered/Resolved]
  - Gait inability [Not Recovered/Not Resolved]
  - Arthralgia [Recovered/Resolved]
  - Feeling cold [Recovered/Resolved]
  - Bone contusion [Recovered/Resolved]
  - Sepsis [Recovered/Resolved]
  - Fatigue [Recovered/Resolved]
  - Abnormal weight gain [Unknown]
  - Muscle atrophy [Unknown]
  - Heart rate increased [Recovered/Resolved]
  - Joint dislocation [Not Recovered/Not Resolved]
  - Rib fracture [Recovered/Resolved]
  - Shoulder fracture [Recovered/Resolved]
  - Blood thyroid stimulating hormone abnormal [Unknown]
  - Arthritis [Unknown]
  - Accident [Unknown]
  - Cholelithiasis [Unknown]
  - Haematological malignancy [Unknown]
  - Anaemia [Unknown]
  - Fall [Unknown]

NARRATIVE: CASE EVENT DATE: 20231101
